FAERS Safety Report 7384003-3 (Version None)
Quarter: 2011Q1

REPORT INFORMATION
  Report Type: 
  Country: None (occurrence: None)
  Receive Date: 20110330
  Receipt Date: 20110323
  Transmission Date: 20110831
  Serious: Yes (Hospitalization)
  Sender: FDA-Public Use
  Company Number: US-B.I. PHARMACEUTICALS,INC./RIDGEFIELD-2011-BP-08960BP

PATIENT
  Age: 70 Year
  Sex: Male

DRUGS (3)
  1. ATENOLOL [Concomitant]
     Indication: HYPERTENSION
  2. PRADAXA [Suspect]
     Indication: ATRIAL FLUTTER
     Dosage: 300 MG
     Route: 048
     Dates: start: 20110201, end: 20110321
  3. SYNTHROID [Concomitant]
     Indication: HYPOTHYROIDISM

REACTIONS (7)
  - ABDOMINAL PAIN LOWER [None]
  - WEIGHT DECREASED [None]
  - CHEST PAIN [None]
  - ABDOMINAL PAIN UPPER [None]
  - DECREASED APPETITE [None]
  - NAUSEA [None]
  - PULMONARY EMBOLISM [None]
